FAERS Safety Report 14022130 (Version 3)
Quarter: 2018Q1

REPORT INFORMATION
  Report Type: Spontaneous
  Country: JP (occurrence: JP)
  Receive Date: 20170928
  Receipt Date: 20180227
  Transmission Date: 20180508
  Serious: Yes (Death, Hospitalization)
  Sender: FDA-Public Use
  Company Number: JP-BAUSCH-BL-2017-027898

PATIENT
  Age: 69 Year
  Sex: Female

DRUGS (2)
  1. URSO [Suspect]
     Active Substance: URSODIOL
     Indication: AUTOIMMUNE HEPATITIS
     Route: 048
  2. TALION [Suspect]
     Active Substance: BEPOTASTINE
     Indication: PRODUCT USED FOR UNKNOWN INDICATION
     Dosage: AT A DOSE OF 1 MG/DAY
     Route: 048

REACTIONS (6)
  - Agranulocytosis [Unknown]
  - Disseminated intravascular coagulation [Fatal]
  - Elderly [Unknown]
  - Pneumonia [Unknown]
  - Bronchopulmonary aspergillosis [Fatal]
  - Cerebral haemorrhage [Fatal]
